FAERS Safety Report 7051133-5 (Version None)
Quarter: 2010Q4

REPORT INFORMATION
  Report Type: 
  Country: None (occurrence: None)
  Receive Date: 20101019
  Receipt Date: 20101005
  Transmission Date: 20110411
  Serious: Yes (Other)
  Sender: FDA-Public Use
  Company Number: US-RANBAXY-2010US-38594

PATIENT

DRUGS (6)
  1. TOPIRAMATE [Suspect]
     Indication: HEADACHE
     Dosage: 25 MG
     Route: 065
  2. TOPIRAMATE [Suspect]
     Dosage: INCREASED TO 125 MG
  3. TOPAMAX [Suspect]
     Indication: HEADACHE
     Dosage: 25 MG, UNK
     Route: 065
  4. GABAPENTIN [Concomitant]
     Indication: PRODUCT USED FOR UNKNOWN INDICATION
     Dosage: UNK, UNK
     Route: 065
  5. LISINOPRIL [Concomitant]
     Indication: PRODUCT USED FOR UNKNOWN INDICATION
     Dosage: UNK, UNK
     Route: 065
  6. PROPRANOLOL [Concomitant]
     Indication: PRODUCT USED FOR UNKNOWN INDICATION
     Dosage: UNK, UNK
     Route: 065

REACTIONS (1)
  - BURNING MOUTH SYNDROME [None]
